FAERS Safety Report 9641554 (Version 5)
Quarter: 2014Q4

REPORT INFORMATION
  Report Type: Spontaneous
  Country: US (occurrence: US)
  Receive Date: 20131023
  Receipt Date: 20141201
  Transmission Date: 20150529
  Serious: Yes (Other)
  Sender: FDA-Public Use
  Company Number: US-BAYER-2013-126234

PATIENT
  Age: 34 Year
  Sex: Female
  Weight: 48.53 kg

DRUGS (2)
  1. MIRENA [Suspect]
     Active Substance: LEVONORGESTREL
     Indication: CONTRACEPTION
     Dosage: 20 MCG/24HR, CONT
     Route: 015
     Dates: start: 20061229, end: 20091016
  2. FOSAMAX [Concomitant]
     Active Substance: ALENDRONATE SODIUM

REACTIONS (21)
  - Uterine perforation [None]
  - Device dislocation [None]
  - Pelvic pain [None]
  - Medical device pain [None]
  - Migraine [None]
  - Bruxism [None]
  - Pain [None]
  - Rash [None]
  - Emotional distress [None]
  - Fatigue [None]
  - Placenta accreta [None]
  - Scar [None]
  - Osteoporosis [None]
  - Hormone level abnormal [None]
  - Feeling abnormal [None]
  - Genital haemorrhage [None]
  - Injury [None]
  - Back pain [None]
  - Dry eye [None]
  - Device difficult to use [None]
  - Anxiety [None]

NARRATIVE: CASE EVENT DATE: 2008
